FAERS Safety Report 7547121-2 (Version None)
Quarter: 2011Q2

REPORT INFORMATION
  Report Type: 
  Country: None (occurrence: None)
  Receive Date: 20110607
  Receipt Date: 20110601
  Transmission Date: 20111010
  Serious: Yes (Other)
  Sender: FDA-Public Use
  Company Number: 2011SP025446

PATIENT
  Age: 71 Year
  Sex: Male

DRUGS (3)
  1. INTRON A [Suspect]
     Indication: MYCOSIS FUNGOIDES
     Dosage: 3 MIU;TIW 6 MIU;TIW
     Dates: start: 20100601
  2. INTRON A [Suspect]
     Indication: MYCOSIS FUNGOIDES
     Dosage: 3 MIU;TIW 6 MIU;TIW
     Dates: end: 20110224
  3. INTRON A [Suspect]
     Indication: MYCOSIS FUNGOIDES
     Dosage: 3 MIU;TIW 6 MIU;TIW
     Dates: start: 20110310

REACTIONS (2)
  - FATIGUE [None]
  - TOXICITY TO VARIOUS AGENTS [None]
